FAERS Safety Report 5448223-7 (Version None)
Quarter: 2007Q3

REPORT INFORMATION
  Report Type: 
  Country: None (occurrence: None)
  Receive Date: 20070906
  Receipt Date: 20070829
  Transmission Date: 20080115
  Serious: Yes (Hospitalization)
  Sender: FDA-Public Use
  Company Number: 2007-03987

PATIENT
  Age: 47 Year
  Sex: Female

DRUGS (5)
  1. CEFUROXIME SODIUM [Suspect]
     Indication: INFECTION
     Dosage: ORAL
     Route: 048
     Dates: start: 20070101, end: 20070101
  2. CEFTRIAXONE [Suspect]
     Indication: INFECTION
     Dosage: INTRAMUSCULAR
     Route: 030
     Dates: start: 20070101, end: 20070101
  3. ERGOTAMINE             (ERGOTAMINE) [Concomitant]
  4. PROPRANOLOL [Concomitant]
  5. DICLOFENAC               (DICLOFENAC) [Concomitant]

REACTIONS (1)
  - SERUM SICKNESS [None]
